FAERS Safety Report 10239314 (Version 2)
Quarter: 2014Q2

REPORT INFORMATION
  Report Type: Spontaneous
  Country: US (occurrence: US)
  Receive Date: 20140616
  Receipt Date: 20140616
  Transmission Date: 20141212
  Serious: Yes (Other)
  Sender: FDA-Public Use
  Company Number: US-ALLERGAN-1412663US

PATIENT
  Age: 62 Year
  Sex: Female

DRUGS (3)
  1. COMBIGAN[R] [Suspect]
     Indication: GLAUCOMA
     Dosage: 2 GTT, BID
     Route: 047
     Dates: start: 20140408
  2. TRAVATAN Z [Suspect]
     Indication: GLAUCOMA
     Dosage: 2 GTT, BID
     Route: 047
  3. ATENOLOL [Concomitant]
     Indication: HYPERTENSION

REACTIONS (4)
  - Vision blurred [Recovered/Resolved]
  - Blood pressure decreased [Recovered/Resolved]
  - Fear [Unknown]
  - Drug ineffective [Unknown]
